FAERS Safety Report 24205582 (Version 1)
Quarter: 2024Q3

REPORT INFORMATION
  Report Type: Spontaneous
  Country: SE (occurrence: SE)
  Receive Date: 20240813
  Receipt Date: 20240813
  Transmission Date: 20241016
  Serious: Yes (Other)
  Sender: ELI LILLY AND CO
  Company Number: None

PATIENT
  Age: 48 Year
  Sex: Female

DRUGS (11)
  1. ATOMOXETINE HYDROCHLORIDE [Suspect]
     Active Substance: ATOMOXETINE HYDROCHLORIDE
     Indication: Product used for unknown indication
     Dosage: UNK UNK, UNKNOWN
     Route: 065
     Dates: start: 20240522, end: 20240704
  2. PARAFLEX [Concomitant]
     Active Substance: CHLORZOXAZONE
     Indication: Product used for unknown indication
     Dosage: 1 TABLET IF NEEDED, NO MORE THAN 4 TABLETS PER DAY
     Route: 065
     Dates: start: 20230621
  3. BACLOFEN [Concomitant]
     Active Substance: BACLOFEN
     Indication: Product used for unknown indication
     Dosage: 10 MG, DAILY
     Route: 065
     Dates: start: 20231204
  4. ESOMEPRAZOLE MAGNESIUM [Concomitant]
     Active Substance: ESOMEPRAZOLE MAGNESIUM
     Indication: Product used for unknown indication
     Dosage: 40 MG, DAILY
     Route: 065
     Dates: start: 20220315
  5. ARITONIN [Concomitant]
     Indication: Product used for unknown indication
     Dosage: 1-2 TABLETS AT 9 PM
     Route: 065
     Dates: start: 20230202
  6. PROMETHAZINE HYDROCHLORIDE [Concomitant]
     Active Substance: PROMETHAZINE HYDROCHLORIDE
     Indication: Product used for unknown indication
     Dosage: 2-4 TABLETS IF NEEDED, MAXIMUM 10 TABLETS PER DAY
     Route: 065
     Dates: start: 20220701
  7. DROSPIRENONE [Concomitant]
     Active Substance: DROSPIRENONE
     Indication: Product used for unknown indication
     Dosage: 4 MG, DAILY
     Route: 065
     Dates: start: 20231114
  8. DROSPIRENONE [Concomitant]
     Active Substance: DROSPIRENONE
     Dosage: 8 MG, DAILY
     Route: 065
     Dates: start: 20240411
  9. BLISSEL [Concomitant]
     Indication: Product used for unknown indication
     Dosage: 1 DOSAGE FORM, Q12H
     Route: 065
     Dates: start: 20231113
  10. DIENOGEST\ETHINYL ESTRADIOL [Concomitant]
     Active Substance: DIENOGEST\ETHINYL ESTRADIOL
     Indication: Product used for unknown indication
     Dosage: WHITE TABLETS ONLY. IN CASE OF BLEEDING, TAKE A 4 DAY BREAK.
     Route: 065
     Dates: start: 20240314
  11. PRIMPERAN [Concomitant]
     Active Substance: METOCLOPRAMIDE HYDROCHLORIDE
     Indication: Product used for unknown indication
     Dosage: 10 MG, PRN
     Route: 065

REACTIONS (7)
  - Executive dysfunction [Unknown]
  - Hypotension [Unknown]
  - Emotional poverty [Unknown]
  - Aggression [Unknown]
  - Fatigue [Unknown]
  - Heart rate increased [Unknown]
  - Anxiety [Unknown]

NARRATIVE: CASE EVENT DATE: 20240101
